FAERS Safety Report 5797253-4 (Version None)
Quarter: 2008Q3

REPORT INFORMATION
  Report Type: 
  Country: None (occurrence: None)
  Receive Date: 20080701
  Receipt Date: 20080627
  Transmission Date: 20090109
  Serious: Yes (Other)
  Sender: FDA-Public Use
  Company Number: CY-MERCK-0806USA08920

PATIENT
  Age: 13 Year
  Sex: Male

DRUGS (2)
  1. SINGULAIR [Suspect]
     Indication: ASTHMA
     Route: 048
     Dates: start: 20080501, end: 20080615
  2. SINGULAIR [Suspect]
     Route: 048
     Dates: start: 20050101

REACTIONS (2)
  - NIGHTMARE [None]
  - SUICIDAL IDEATION [None]
